FAERS Safety Report 9807350 (Version 2)
Quarter: 2014Q1

REPORT INFORMATION
  Report Type: Spontaneous
  Country: US (occurrence: US)
  Receive Date: 20140110
  Receipt Date: 20140121
  Transmission Date: 20141002
  Serious: No
  Sender: FDA-Public Use
  Company Number: US-US-EMD SERONO, INC.-7261668

PATIENT
  Sex: Female

DRUGS (2)
  1. REBIF [Suspect]
     Indication: MULTIPLE SCLEROSIS
     Route: 058
     Dates: start: 201309
  2. SYNTHROID [Concomitant]
     Indication: HYPOTHYROIDISM

REACTIONS (6)
  - Migraine [Unknown]
  - Abdominal pain upper [Recovering/Resolving]
  - Malaise [Recovering/Resolving]
  - Blood thyroid stimulating hormone increased [Unknown]
  - Influenza like illness [Recovered/Resolved]
  - Fatigue [Unknown]
